FAERS Safety Report 4290583-7 (Version None)
Quarter: 2004Q1

REPORT INFORMATION
  Report Type: 
  Country: None (occurrence: None)
  Receive Date: 20040203
  Receipt Date: 20040119
  Transmission Date: 20041129
  Serious: Yes (Hospitalization, Other)
  Sender: FDA-Public Use
  Company Number: 234833

PATIENT
  Age: 68 Year
  Sex: Male
  Weight: 82 kg

DRUGS (6)
  1. NOVOSEVEN [Suspect]
     Indication: CEREBRAL HAEMORRHAGE
     Dosage: 160 UG/KG, INTRAVENOUS
     Route: 042
     Dates: start: 20040113, end: 20040113
  2. FENTANYL [Concomitant]
  3. MIDAZOLAM HCL [Concomitant]
  4. FUROSEMIDE [Concomitant]
  5. INSULIN [Concomitant]
  6. DORMICUM FOR INJECTION (MIDAZOLAM HYDROCHLORIDE) [Concomitant]

REACTIONS (2)
  - CEREBRAL INFARCTION [None]
  - RESPIRATORY FAILURE [None]
